FAERS Safety Report 16892944 (Version 12)
Quarter: 2020Q4

REPORT INFORMATION
  Report Type: Report from Study
  Country: None (occurrence: CO)
  Receive Date: 20191007
  Receipt Date: 20201221
  Transmission Date: 20210113
  Serious: Yes (Disabling, Other)
  Sender: FDA-Public Use
  Company Number: CO-ABBVIE-19K-036-2953850-00

PATIENT
  Age: 55 Year
  Sex: Female
  Weight: 97 kg

DRUGS (11)
  1. AMITRIPTYLINE [Concomitant]
     Active Substance: AMITRIPTYLINE
     Indication: SLEEP DISORDER
     Dosage: 1 TABLET AT NIGHT
  2. TRAMADOL. [Suspect]
     Active Substance: TRAMADOL
     Dosage: ACCORDING TO PAIN
     Route: 065
  3. LOSARTAN. [Concomitant]
     Active Substance: LOSARTAN
     Indication: HYPERTENSION
     Route: 048
     Dates: start: 2016
  4. SALBUTAMOL [Concomitant]
     Active Substance: ALBUTEROL
     Indication: PRODUCT USED FOR UNKNOWN INDICATION
  5. NAPROXEN. [Concomitant]
     Active Substance: NAPROXEN
     Indication: PRODUCT USED FOR UNKNOWN INDICATION
     Dosage: EVERY 12 HOURS
  6. HUMIRA [Suspect]
     Active Substance: ADALIMUMAB
     Indication: RHEUMATOID ARTHRITIS
     Route: 058
     Dates: start: 20190814, end: 20200710
  7. ACETAMINOPHEN. [Concomitant]
     Active Substance: ACETAMINOPHEN
     Indication: HEADACHE
     Route: 048
     Dates: start: 20200703
  8. PREDNISOLONE. [Concomitant]
     Active Substance: PREDNISOLONE
     Indication: PRODUCT USED FOR UNKNOWN INDICATION
  9. TRAMADOL. [Suspect]
     Active Substance: TRAMADOL
     Indication: PRODUCT USED FOR UNKNOWN INDICATION
     Route: 065
  10. HYDROCODONE BITARTRATE AND ACETAMINOPHEN [Concomitant]
     Active Substance: ACETAMINOPHEN\HYDROCODONE BITARTRATE
     Indication: PRODUCT USED FOR UNKNOWN INDICATION
     Route: 048
  11. HUMIRA [Suspect]
     Active Substance: ADALIMUMAB
     Route: 058

REACTIONS (35)
  - Depression [Recovering/Resolving]
  - Blood test abnormal [Unknown]
  - Musculoskeletal pain [Not Recovered/Not Resolved]
  - Pelvic pain [Recovering/Resolving]
  - Back pain [Not Recovered/Not Resolved]
  - Headache [Unknown]
  - Gait disturbance [Not Recovered/Not Resolved]
  - Pyrexia [Recovering/Resolving]
  - Pain in extremity [Not Recovered/Not Resolved]
  - Peripheral swelling [Not Recovered/Not Resolved]
  - Somnolence [Recovering/Resolving]
  - Abdominal discomfort [Recovering/Resolving]
  - Chills [Recovering/Resolving]
  - Lung disorder [Unknown]
  - Respiratory tract infection [Unknown]
  - Pelvic pain [Unknown]
  - Tachycardia [Recovering/Resolving]
  - Inflammation [Not Recovered/Not Resolved]
  - Influenza like illness [Recovering/Resolving]
  - Mobility decreased [Unknown]
  - Thyroid mass [Unknown]
  - Pulmonary pain [Unknown]
  - Tachyarrhythmia [Unknown]
  - Muscle spasms [Recovering/Resolving]
  - Haemoptysis [Recovering/Resolving]
  - Lymphadenopathy [Unknown]
  - Dizziness [Recovering/Resolving]
  - Pyrexia [Recovering/Resolving]
  - Goitre [Unknown]
  - Pneumonitis [Unknown]
  - Fibromyalgia [Unknown]
  - Fall [Recovering/Resolving]
  - Spinal pain [Not Recovered/Not Resolved]
  - Peripheral swelling [Not Recovered/Not Resolved]
  - Rheumatoid arthritis [Not Recovered/Not Resolved]

NARRATIVE: CASE EVENT DATE: 2019
